FAERS Safety Report 8801121 (Version 3)
Quarter: 2012Q4

REPORT INFORMATION
  Report Type: 
  Country: US (occurrence: US)
  Receive Date: 20120921
  Receipt Date: 20121128
  Transmission Date: 20130627
  Serious: No
  Sender: FDA-Public Use
  Company Number: US-VERTEX PHARMACEUTICAL INC.-2012-020743

PATIENT
  Age: 55 Year
  Sex: Female

DRUGS (4)
  1. INCIVEK [Suspect]
     Indication: HEPATITIS C
     Dosage: 750 mg, tid
     Route: 048
     Dates: start: 20120824
  2. INCIVEK [Suspect]
     Dosage: 1125 mg, bid
     Route: 048
  3. PEGASYS [Suspect]
     Indication: HEPATITIS C
     Dosage: 180 ?g, UNK
     Route: 058
     Dates: start: 20120824
  4. RIBAVIRIN [Suspect]
     Indication: HEPATITIS C
     Dosage: UNK, bid
     Route: 048
     Dates: start: 20120824

REACTIONS (6)
  - Headache [None]
  - Sensory disturbance [Unknown]
  - Nervousness [Unknown]
  - Injection site erythema [Not Recovered/Not Resolved]
  - Rash macular [Unknown]
  - Nausea [None]
